FAERS Safety Report 19909125 (Version 2)
Quarter: 2021Q4

REPORT INFORMATION
  Report Type: Spontaneous
  Country: US (occurrence: None)
  Receive Date: 20211001
  Receipt Date: 20211124
  Transmission Date: 20220303
  Serious: No
  Sender: FDA-Public Use
  Company Number: 2021A733757

PATIENT
  Age: 74 Year
  Sex: Female
  Weight: 72.6 kg

DRUGS (10)
  1. BUDESONIDE\FORMOTEROL\GLYCOPYRRONIUM [Suspect]
     Active Substance: BUDESONIDE\FORMOTEROL\GLYCOPYRRONIUM
     Indication: Chronic obstructive pulmonary disease
     Dosage: 160/9/4.8MCG 2 PUFFS TWO TIMES A DAY
     Route: 055
     Dates: start: 202109
  2. SYMBICORT [Suspect]
     Active Substance: BUDESONIDE\FORMOTEROL FUMARATE DIHYDRATE
     Indication: Chronic obstructive pulmonary disease
     Dosage: 160/4.5MCG 2 PUFFS TWO TIMES A DAY
     Route: 055
     Dates: start: 2010, end: 202109
  3. SPIRIVA [Concomitant]
     Active Substance: TIOTROPIUM BROMIDE MONOHYDRATE
     Dates: end: 202109
  4. ATORVASTATIN [Concomitant]
     Active Substance: ATORVASTATIN
     Route: 048
  5. AMLODIPINE [Concomitant]
     Active Substance: AMLODIPINE BESYLATE
     Route: 048
  6. VALSARTAN [Concomitant]
     Active Substance: VALSARTAN
     Route: 048
  7. CITALOPRAM [Concomitant]
     Active Substance: CITALOPRAM HYDROBROMIDE
  8. FAMOTIDINE [Concomitant]
     Active Substance: FAMOTIDINE
     Route: 048
  9. VITAMIN D [Concomitant]
     Active Substance: VITAMIN D NOS
  10. LEVSIN SL [Concomitant]
     Active Substance: HYOSCYAMINE SULFATE
     Indication: Irritable bowel syndrome
     Route: 048

REACTIONS (7)
  - Chronic obstructive pulmonary disease [Recovering/Resolving]
  - Hypertension [Not Recovered/Not Resolved]
  - Sarcoidosis [Not Recovered/Not Resolved]
  - Device delivery system issue [Unknown]
  - Device use issue [Recovered/Resolved]
  - Drug dose omission by device [Not Recovered/Not Resolved]
  - Device malfunction [Unknown]

NARRATIVE: CASE EVENT DATE: 20210101
